FAERS Safety Report 7435703-8 (Version None)
Quarter: 2011Q2

REPORT INFORMATION
  Report Type: 
  Country: None (occurrence: None)
  Receive Date: 20110422
  Receipt Date: 20110418
  Transmission Date: 20111010
  Serious: Yes (Hospitalization)
  Sender: FDA-Public Use
  Company Number: FR-MERCK-1104FRA00103

PATIENT
  Age: 66 Year
  Sex: Female
  Weight: 49 kg

DRUGS (24)
  1. GEMCITABINE [Concomitant]
     Indication: LUNG ADENOCARCINOMA
     Route: 065
     Dates: start: 20101019
  2. EMEND [Suspect]
     Route: 048
     Dates: start: 20101102, end: 20101102
  3. EMEND [Suspect]
     Route: 048
     Dates: start: 20101103, end: 20101104
  4. EMEND [Suspect]
     Route: 048
     Dates: start: 20101020, end: 20101021
  5. EMEND [Suspect]
     Route: 048
     Dates: start: 20101116, end: 20101116
  6. EMEND [Suspect]
     Indication: PROPHYLAXIS OF NAUSEA AND VOMITING
     Route: 048
     Dates: start: 20101019, end: 20101019
  7. CALCIUM CARBONATE AND CHOLECALCIFEROL [Concomitant]
     Route: 065
  8. ONDANSETRON HYDROCHLORIDE [Concomitant]
     Route: 065
     Dates: start: 20101102, end: 20101102
  9. TIOTROPIUM BROMIDE [Concomitant]
     Route: 065
  10. OXAZEPAM [Concomitant]
     Route: 065
  11. ONDANSETRON HYDROCHLORIDE [Concomitant]
     Route: 065
     Dates: start: 20101116, end: 20101116
  12. DOMPERIDONE [Concomitant]
     Route: 065
     Dates: end: 20101116
  13. EMEND [Suspect]
     Route: 048
     Dates: start: 20101117, end: 20101118
  14. IBANDRONATE SODIUM [Concomitant]
     Route: 065
  15. OXALIPLATIN [Concomitant]
     Indication: LUNG ADENOCARCINOMA
     Route: 065
     Dates: start: 20101019
  16. ONDANSETRON HYDROCHLORIDE [Concomitant]
     Indication: PROPHYLAXIS OF NAUSEA AND VOMITING
     Route: 065
     Dates: start: 20101019, end: 20101019
  17. LEVOTHYROXINE SODIUM [Concomitant]
     Route: 065
  18. LOPRAZOLAM MESYLATE [Concomitant]
     Route: 065
  19. ACETAMINOPHEN [Concomitant]
     Indication: PAIN
     Route: 065
  20. DOMPERIDONE [Concomitant]
     Route: 065
     Dates: end: 20101116
  21. ATORVASTATIN CALCIUM [Suspect]
     Indication: DYSLIPIDAEMIA
     Route: 048
     Dates: end: 20101119
  22. BUDESONIDE AND FORMOTEROL FUMARATE [Concomitant]
     Route: 065
  23. BROMAZEPAM [Concomitant]
     Route: 065
  24. METOCLOPRAMIDE HYDROCHLORIDE [Concomitant]
     Route: 065
     Dates: end: 20101116

REACTIONS (1)
  - RHABDOMYOLYSIS [None]
